FAERS Safety Report 6980171-3 (Version None)
Quarter: 2010Q3

REPORT INFORMATION
  Report Type: 
  Country: None (occurrence: None)
  Receive Date: 20100909
  Receipt Date: 20100902
  Transmission Date: 20110219
  Serious: Yes (Other)
  Sender: FDA-Public Use
  Company Number: 688087

PATIENT
  Sex: Female

DRUGS (2)
  1. OXALIPLATIN [Suspect]
     Indication: COLORECTAL CANCER METASTATIC
  2. CAPECITABINE [Suspect]
     Indication: COLORECTAL CANCER METASTATIC

REACTIONS (3)
  - COMA [None]
  - UNRESPONSIVE TO STIMULI [None]
  - VOMITING [None]
